FAERS Safety Report 10914142 (Version 1)
Quarter: 2015Q1

REPORT INFORMATION
  Report Type: Spontaneous
  Country: US (occurrence: US)
  Receive Date: 20150313
  Receipt Date: 20150313
  Transmission Date: 20150721
  Serious: Yes (Hospitalization)
  Sender: FDA-Public Use
  Company Number: US-PURDUE-USA-2015-0121484

PATIENT
  Sex: Male

DRUGS (5)
  1. OXYCODONE HCL IR CAPSULES [Suspect]
     Active Substance: OXYCODONE HYDROCHLORIDE
     Indication: PAIN
     Dosage: 180 MG, DAILY
     Route: 048
     Dates: start: 2008
  2. OXYCONTIN [Suspect]
     Active Substance: OXYCODONE HYDROCHLORIDE
     Indication: PAIN
     Dosage: 240 MG, DAILY
     Route: 048
     Dates: end: 201411
  3. OXYCODONE HCL TABLETS (RHODES 91-490) [Suspect]
     Active Substance: OXYCODONE HYDROCHLORIDE
     Indication: PAIN
     Dosage: 180 MG, DAILY
     Route: 048
  4. OXYCONTIN [Suspect]
     Active Substance: OXYCODONE HYDROCHLORIDE
     Dosage: 20 MG, UNK
     Route: 048
     Dates: start: 2000
  5. OXYCONTIN [Suspect]
     Active Substance: OXYCODONE HYDROCHLORIDE
     Dosage: 560 MG, DAILY
     Route: 048
     Dates: start: 2007

REACTIONS (9)
  - Dyspnoea [Unknown]
  - Peripheral swelling [Unknown]
  - Sepsis [Unknown]
  - Dehydration [Unknown]
  - Vomiting [Unknown]
  - Stent placement [Unknown]
  - Asthenia [Unknown]
  - Syncope [Unknown]
  - Hypotension [Unknown]
